FAERS Safety Report 7982252-4 (Version None)
Quarter: 2011Q4

REPORT INFORMATION
  Report Type: 
  Country: None (occurrence: None)
  Receive Date: 20111215
  Receipt Date: 20111215
  Transmission Date: 20120403
  Serious: Yes (Other)
  Sender: FDA-Public Use
  Company Number: None

PATIENT
  Sex: Female
  Weight: 68.038 kg

DRUGS (2)
  1. LEVAQUIN [Suspect]
     Indication: URINARY TRACT INFECTION
     Dosage: 3
     Route: 048
     Dates: start: 20070313, end: 20070315
  2. CIPROFLOXACN TAB [Concomitant]
     Indication: URINARY TRACT INFECTION
     Dosage: 24
     Route: 048
     Dates: start: 20101213, end: 20110801

REACTIONS (7)
  - TENDON RUPTURE [None]
  - IMPAIRED WORK ABILITY [None]
  - HEADACHE [None]
  - PAIN IN EXTREMITY [None]
  - COMPLEX REGIONAL PAIN SYNDROME [None]
  - TENDONITIS [None]
  - URINARY TRACT INFECTION [None]
